FAERS Safety Report 9806358 (Version 1)
Quarter: 2014Q1

REPORT INFORMATION
  Report Type: Spontaneous
  Country: US (occurrence: US)
  Receive Date: 20140109
  Receipt Date: 20140109
  Transmission Date: 20141002
  Serious: Yes (Death, Hospitalization)
  Sender: FDA-Public Use
  Company Number: US-ASTRAZENECA-2014SE01553

PATIENT
  Age: 55 Year
  Sex: Female

DRUGS (10)
  1. ATENOLOL [Suspect]
     Route: 048
  2. DIAZEPAM [Suspect]
     Route: 048
  3. ACETAMINOPHEN+HYDROCODONE [Suspect]
     Route: 048
  4. AMITRIPTYLINE [Suspect]
     Route: 048
  5. ISOSORBIDE DINITRATE [Suspect]
     Route: 048
  6. SALICYLATE [Suspect]
     Route: 048
  7. CHLORPROMAZINE [Suspect]
     Route: 048
  8. DULOXETINE [Suspect]
     Route: 048
  9. TRAMADOL [Suspect]
     Route: 048
  10. ALCOHOL [Suspect]
     Route: 048

REACTIONS (2)
  - Toxicity to various agents [Fatal]
  - Completed suicide [Fatal]
